FAERS Safety Report 14271252 (Version 1)
Quarter: 2017Q4

REPORT INFORMATION
  Report Type: Spontaneous
  Country: CH (occurrence: CH)
  Receive Date: 20171211
  Receipt Date: 20171211
  Transmission Date: 20180321
  Serious: Yes (Hospitalization)
  Sender: FDA-Public Use
  Company Number: CH-SA-2017SA240890

PATIENT
  Age: 86 Year
  Sex: Female

DRUGS (9)
  1. PLENDIL [Concomitant]
     Active Substance: FELODIPINE
     Route: 065
     Dates: start: 20170720, end: 20170811
  2. APROVEL [Concomitant]
     Active Substance: IRBESARTAN
     Route: 065
     Dates: start: 20170720, end: 20170724
  3. CO-APROVEL [Suspect]
     Active Substance: HYDROCHLOROTHIAZIDE\IRBESARTAN
     Route: 048
     Dates: end: 20170720
  4. BELOC ZOK [Concomitant]
     Active Substance: METOPROLOL SUCCINATE
     Route: 065
     Dates: start: 20170728, end: 20170811
  5. CO-APROVEL [Suspect]
     Active Substance: HYDROCHLOROTHIAZIDE\IRBESARTAN
     Route: 048
     Dates: start: 20150818
  6. PLENDIL [Concomitant]
     Active Substance: FELODIPINE
     Route: 065
     Dates: start: 2009
  7. CO-APROVEL [Suspect]
     Active Substance: HYDROCHLOROTHIAZIDE\IRBESARTAN
     Route: 048
     Dates: start: 2009
  8. BELOC ZOK [Concomitant]
     Active Substance: METOPROLOL SUCCINATE
     Route: 065
     Dates: start: 2001
  9. BELOC ZOK [Concomitant]
     Active Substance: METOPROLOL SUCCINATE
     Route: 065
     Dates: start: 20170720, end: 20170727

REACTIONS (2)
  - Hyponatraemia [Recovered/Resolved]
  - Hypercalcaemia [Recovered/Resolved]

NARRATIVE: CASE EVENT DATE: 201505
